FAERS Safety Report 9432406 (Version 1)
Quarter: 2013Q3

REPORT INFORMATION
  Report Type: Spontaneous
  Country: SG (occurrence: SG)
  Receive Date: 20130731
  Receipt Date: 20130731
  Transmission Date: 20140515
  Serious: Yes (Other)
  Sender: FDA-Public Use
  Company Number: SG-BAYER-2013-092423

PATIENT
  Age: 75 Year
  Sex: Female

DRUGS (1)
  1. ACARBOSE [Suspect]

REACTIONS (1)
  - Nausea [Unknown]
